FAERS Safety Report 9327360 (Version 2)
Quarter: 2013Q3

REPORT INFORMATION
  Report Type: Report from Study
  Country: JP (occurrence: JP)
  Receive Date: 20130604
  Receipt Date: 20130703
  Transmission Date: 20140515
  Serious: No
  Sender: FDA-Public Use
  Company Number: JP-JNJFOC-20130523332

PATIENT
  Age: 75 Year
  Sex: Female
  Weight: 59 kg

DRUGS (13)
  1. SIMPONI [Suspect]
     Indication: RHEUMATOID ARTHRITIS
     Route: 058
     Dates: start: 20130322
  2. SIMPONI [Suspect]
     Indication: RHEUMATOID ARTHRITIS
     Route: 058
     Dates: start: 20130222, end: 20130222
  3. SIMPONI [Suspect]
     Indication: RHEUMATOID ARTHRITIS
     Route: 058
     Dates: start: 20130125, end: 20130125
  4. SIMPONI [Suspect]
     Indication: RHEUMATOID ARTHRITIS
     Route: 058
     Dates: start: 20121228, end: 20121228
  5. SIMPONI [Suspect]
     Indication: RHEUMATOID ARTHRITIS
     Route: 058
     Dates: start: 20121130, end: 20121130
  6. SIMPONI [Suspect]
     Indication: RHEUMATOID ARTHRITIS
     Route: 058
     Dates: start: 20121102, end: 20121102
  7. SIMPONI [Suspect]
     Indication: RHEUMATOID ARTHRITIS
     Route: 058
     Dates: start: 20121005, end: 20121005
  8. FAMOTIDINE [Concomitant]
     Indication: PROPHYLAXIS
     Route: 065
  9. SOLETON (ZALTOPROFEN) [Concomitant]
     Indication: SPINAL OSTEOARTHRITIS
     Route: 048
     Dates: start: 20090506
  10. MOTONALIN [Concomitant]
     Indication: SPINAL OSTEOARTHRITIS
     Route: 048
  11. OPEAMIN [Concomitant]
     Indication: DIABETES MELLITUS
     Route: 048
  12. BASEN [Concomitant]
     Indication: DIABETES MELLITUS
     Route: 048
  13. PREDNISOLONE [Concomitant]
     Indication: RHEUMATOID ARTHRITIS
     Route: 048
     Dates: start: 20130111

REACTIONS (1)
  - Cell marker increased [Not Recovered/Not Resolved]
